FAERS Safety Report 18823726 (Version 1)
Quarter: 2021Q1

REPORT INFORMATION
  Report Type: Spontaneous
  Country: US (occurrence: US)
  Receive Date: 20210201
  Receipt Date: 20210201
  Transmission Date: 20210419
  Serious: Yes (Hospitalization)
  Sender: FDA-Public Use
  Company Number: US-ABBVIE-20K-163-3229181-00

PATIENT
  Sex: Female

DRUGS (2)
  1. HUMIRA [Suspect]
     Active Substance: ADALIMUMAB
     Indication: CROHN^S DISEASE
     Route: 058
     Dates: start: 201910
  2. HUMIRA [Suspect]
     Active Substance: ADALIMUMAB
     Indication: COLITIS ULCERATIVE

REACTIONS (10)
  - Hospitalisation [Unknown]
  - Device issue [Unknown]
  - Wrong technique in product usage process [Unknown]
  - Device issue [Unknown]
  - Injection site pain [Unknown]
  - Drug level decreased [Not Recovered/Not Resolved]
  - Gastric disorder [Unknown]
  - Colitis ulcerative [Unknown]
  - Wrong technique in product usage process [Unknown]
  - Clostridium difficile infection [Unknown]

NARRATIVE: CASE EVENT DATE: 20191225
